FAERS Safety Report 14860129 (Version 1)
Quarter: 2018Q2

REPORT INFORMATION
  Report Type: Spontaneous
  Country: ES (occurrence: ES)
  Receive Date: 20180508
  Receipt Date: 20180508
  Transmission Date: 20180711
  Serious: Yes (Other)
  Sender: FDA-Public Use
  Company Number: ES-PFIZER INC-2018185410

PATIENT
  Age: 58 Year
  Sex: Female

DRUGS (7)
  1. GEMCITABINE HYDROCHLORIDE. [Suspect]
     Active Substance: GEMCITABINE HYDROCHLORIDE
     Dosage: UNK
     Route: 065
     Dates: start: 2017
  2. GEMCITABINE HYDROCHLORIDE. [Suspect]
     Active Substance: GEMCITABINE HYDROCHLORIDE
     Dosage: 25% DOSE REDUCTION
     Route: 065
  3. ABRAXANE [Suspect]
     Active Substance: PACLITAXEL
     Dosage: 25% DOSE REDUCTION
     Route: 041
  4. GEMCITABINE HYDROCHLORIDE. [Suspect]
     Active Substance: GEMCITABINE HYDROCHLORIDE
     Indication: ADENOCARCINOMA PANCREAS
     Dosage: UNK
     Route: 065
  5. ABRAXANE [Suspect]
     Active Substance: PACLITAXEL
     Dosage: UNK
     Route: 041
  6. G-CSF [Concomitant]
     Active Substance: GRANULOCYTE COLONY-STIMULATING FACTOR NOS
     Route: 065
  7. ABRAXANE [Suspect]
     Active Substance: PACLITAXEL
     Indication: ADENOCARCINOMA PANCREAS
     Dosage: UNK
     Route: 041
     Dates: start: 2017

REACTIONS (8)
  - Neutropenia [Unknown]
  - Asthenia [Unknown]
  - Alopecia [Unknown]
  - Neuropathy peripheral [Unknown]
  - Anaemia [Unknown]
  - Oedema peripheral [Unknown]
  - Thrombocytopenia [Unknown]
  - Neoplasm progression [Unknown]
